FAERS Safety Report 15569526 (Version 2)
Quarter: 2018Q4

REPORT INFORMATION
  Report Type: Spontaneous
  Country: FI (occurrence: FI)
  Receive Date: 20181031
  Receipt Date: 20181214
  Transmission Date: 20190205
  Serious: Yes (Other)
  Sender: FDA-Public Use
  Company Number: FI-BRISTOL-MYERS SQUIBB COMPANY-BMS-2018-048323

PATIENT
  Age: 75 Year
  Sex: Female

DRUGS (4)
  1. BISOPROLOL [Suspect]
     Active Substance: BISOPROLOL
     Indication: ARRHYTHMIA PROPHYLAXIS
     Dosage: UNK
     Route: 065
  2. FLECAINIDE [Suspect]
     Active Substance: FLECAINIDE
     Indication: PRODUCT USED FOR UNKNOWN INDICATION
     Dosage: 200 MG, UNK
     Route: 065
  3. WARFARIN SODIUM. [Suspect]
     Active Substance: WARFARIN SODIUM
     Indication: ARRHYTHMIA PROPHYLAXIS
     Dosage: UNK
     Route: 065
  4. FLECAINIDE [Suspect]
     Active Substance: FLECAINIDE
     Indication: ATRIAL FIBRILLATION
     Route: 065

REACTIONS (12)
  - Tachyarrhythmia [Recovered/Resolved]
  - Ventricular dyssynchrony [Unknown]
  - Arrhythmia [Unknown]
  - Fall [Unknown]
  - Bundle branch block left [Unknown]
  - Injury [Unknown]
  - Renal failure [Unknown]
  - Therapy non-responder [Unknown]
  - Heart sounds abnormal [Unknown]
  - Atrial fibrillation [Unknown]
  - Electrocardiogram QRS complex prolonged [Recovered/Resolved]
  - Muscular weakness [Unknown]
